FAERS Safety Report 17659568 (Version 3)
Quarter: 2020Q3

REPORT INFORMATION
  Report Type: Spontaneous
  Country: US (occurrence: US)
  Receive Date: 20200413
  Receipt Date: 20200715
  Transmission Date: 20201102
  Serious: Yes (Other)
  Sender: FDA-Public Use
  Company Number: US-VIFOR (INTERNATIONAL) INC.-VIT-2020-05248

PATIENT
  Age: 24 Year
  Sex: Male
  Weight: 89.5 kg

DRUGS (8)
  1. MIRCERA [Suspect]
     Active Substance: METHOXY POLYETHYLENE GLYCOL-EPOETIN BETA
     Indication: NEPHROGENIC ANAEMIA
     Route: 040
     Dates: start: 20200305, end: 20200305
  2. VENOFER [Suspect]
     Active Substance: IRON SUCROSE
     Indication: IRON DEFICIENCY
     Route: 040
     Dates: start: 20200305
  3. HYDRALAZINE [Concomitant]
     Active Substance: HYDRALAZINE HYDROCHLORIDE
     Route: 048
  4. CARVEDILOL. [Concomitant]
     Active Substance: CARVEDILOL
     Dosage: ONE TABLET
     Route: 048
  5. LOSARTAN. [Concomitant]
     Active Substance: LOSARTAN
     Route: 048
  6. VENOFER [Suspect]
     Active Substance: IRON SUCROSE
     Indication: END STAGE RENAL DISEASE
  7. AURYXIA [Concomitant]
     Active Substance: TETRAFERRIC TRICITRATE DECAHYDRATE
     Indication: BLOOD PHOSPHORUS ABNORMAL
     Dosage: WITH MEALS
     Route: 048
  8. NIFEDIPINE. [Concomitant]
     Active Substance: NIFEDIPINE
     Dosage: ER
     Route: 048

REACTIONS (14)
  - Chest discomfort [Recovered/Resolved]
  - Respiratory distress [Recovered/Resolved]
  - Tachycardia [Recovered/Resolved]
  - Swelling face [Recovered/Resolved]
  - Dyspnoea [Recovered/Resolved]
  - Flushing [Recovered/Resolved]
  - Nausea [Recovered/Resolved]
  - Asthenia [Recovered/Resolved]
  - Angioedema [Recovered/Resolved]
  - Hyperventilation [Recovered/Resolved]
  - Chest pain [Recovered/Resolved]
  - Drug hypersensitivity [Recovered/Resolved]
  - Vomiting [Recovered/Resolved]
  - Headache [Recovered/Resolved]

NARRATIVE: CASE EVENT DATE: 20200305
